FAERS Safety Report 18061729 (Version 1)
Quarter: 2020Q3

REPORT INFORMATION
  Report Type: Spontaneous
  Country: US (occurrence: US)
  Receive Date: 20200723
  Receipt Date: 20200723
  Transmission Date: 20201103
  Serious: Yes (Other)
  Sender: FDA-Public Use
  Company Number: US-ASTRAZENECA-2020SE91501

PATIENT
  Age: 28 Year
  Sex: Female
  Weight: 56.7 kg

DRUGS (7)
  1. LORATADINE. [Concomitant]
     Active Substance: LORATADINE
     Indication: HYPERSENSITIVITY
     Dosage: UNKNOWN
     Route: 065
  2. SYMBICORT [Suspect]
     Active Substance: BUDESONIDE\FORMOTEROL FUMARATE DIHYDRATE
     Indication: OBSTRUCTIVE AIRWAYS DISORDER
     Dosage: 80 UG/ 4.5 UG, 2 PUFFS, TWICE DAILY
     Route: 055
     Dates: start: 202006, end: 20200714
  3. SEROQUEL [Suspect]
     Active Substance: QUETIAPINE FUMARATE
     Indication: EUPHORIC MOOD
     Route: 048
     Dates: start: 2016, end: 2020
  4. SYMBICORT [Suspect]
     Active Substance: BUDESONIDE\FORMOTEROL FUMARATE DIHYDRATE
     Indication: DYSPNOEA
     Dosage: 80 UG/ 4.5 UG, 2 PUFFS, TWICE DAILY
     Route: 055
     Dates: start: 202006, end: 20200714
  5. MONTELUKAST [Concomitant]
     Active Substance: MONTELUKAST SODIUM
     Indication: HYPERSENSITIVITY
     Dosage: UNKNOWN
     Route: 065
  6. SEROQUEL [Suspect]
     Active Substance: QUETIAPINE FUMARATE
     Indication: SLEEP DISORDER
     Route: 048
     Dates: start: 2016, end: 2020
  7. ZYRTEC [Concomitant]
     Active Substance: CETIRIZINE HYDROCHLORIDE
     Indication: HYPERSENSITIVITY
     Dosage: UNKNOWN
     Route: 065

REACTIONS (28)
  - Chest discomfort [Not Recovered/Not Resolved]
  - Weight decreased [Unknown]
  - Pyrexia [Not Recovered/Not Resolved]
  - Feeling abnormal [Recovered/Resolved]
  - Nasal dryness [Not Recovered/Not Resolved]
  - Ear infection [Not Recovered/Not Resolved]
  - Vision blurred [Recovered/Resolved]
  - Dissociation [Recovered/Resolved]
  - Bone pain [Not Recovered/Not Resolved]
  - Immunodeficiency [Unknown]
  - Pre-existing condition improved [Unknown]
  - Malaise [Unknown]
  - Intentional product misuse [Unknown]
  - SARS-CoV-2 test negative [Unknown]
  - Heart rate increased [Recovered/Resolved]
  - Fatigue [Not Recovered/Not Resolved]
  - Musculoskeletal discomfort [Unknown]
  - Muscular weakness [Unknown]
  - Obstructive airways disorder [Unknown]
  - Dyspnoea [Unknown]
  - Rash [Unknown]
  - Aggression [Unknown]
  - Throat irritation [Not Recovered/Not Resolved]
  - Condition aggravated [Unknown]
  - Back pain [Unknown]
  - Hypoaesthesia [Recovered/Resolved]
  - Insomnia [Unknown]
  - Headache [Not Recovered/Not Resolved]

NARRATIVE: CASE EVENT DATE: 2020
